FAERS Safety Report 17538647 (Version 1)
Quarter: 2020Q1

REPORT INFORMATION
  Report Type: Spontaneous
  Country: NL (occurrence: GR)
  Receive Date: 20200313
  Receipt Date: 20200313
  Transmission Date: 20200409
  Serious: Yes (Hospitalization)
  Sender: FDA-Public Use
  Company Number: GR-FRESENIUS KABI-FK202002532

PATIENT
  Age: 67 Year
  Sex: Female

DRUGS (4)
  1. HYOSCINE BUTYLBROMIDE [Suspect]
     Active Substance: BUTYLSCOPOLAMINE BROMIDE
     Indication: LIGHT ANAESTHESIA
     Route: 065
  2. FLUMAZENIL (MANUFACTURER UNKNOWN) [Suspect]
     Active Substance: FLUMAZENIL
     Indication: LIGHT ANAESTHESIA
     Route: 065
  3. MIDAZOLAM HYDROCHLORIDE. [Suspect]
     Active Substance: MIDAZOLAM HYDROCHLORIDE
     Indication: LIGHT ANAESTHESIA
     Route: 065
  4. PROPOFOL (MANUFACTURER UNKNOWN) [Suspect]
     Active Substance: PROPOFOL
     Indication: LIGHT ANAESTHESIA
     Route: 065

REACTIONS (3)
  - Chills [Recovered/Resolved]
  - Muscle spasms [Recovered/Resolved]
  - Pyrexia [Recovered/Resolved]

NARRATIVE: CASE EVENT DATE: 20191206
